FAERS Safety Report 25948159 (Version 1)
Quarter: 2025Q4

REPORT INFORMATION
  Report Type: Report from Study
  Country: EU (occurrence: EU)
  Receive Date: 20251022
  Receipt Date: 20251022
  Transmission Date: 20260117
  Serious: Yes (Hospitalization)
  Sender: ROCHE
  Company Number: EU-ROCHE-10000412170

PATIENT
  Age: 86 Year
  Sex: Male

DRUGS (4)
  1. FARICIMAB [Suspect]
     Active Substance: FARICIMAB
     Indication: Neovascular age-related macular degeneration
     Dosage: FREQUENCY OF FARICIMAB * T+E
     Route: 050
     Dates: start: 20240227
  2. BIMATOPROST plus TIMOLOL 0.3MG/ML / 5MG/ML (GANFORT) BILATERAL [Concomitant]
     Indication: Borderline glaucoma
     Dosage: BIMATOPROST + TIMOLOL 0.3MG/ML / 5MG/ML?(GANFORT) BILATERAL
     Dates: start: 20140818
  3. BROLUCIZUMAB [Concomitant]
     Active Substance: BROLUCIZUMAB
     Indication: Macular degeneration
     Dates: start: 20250319
  4. BIMATOPROST plus TIMOLOL 0.3MG/ML / 5MG/ML (GANFORT) BILATERAL [Concomitant]
     Indication: Borderline glaucoma
     Dosage: BIMATOPROST + TIMOLOL 0.3MG/ML / 5MG/ML?(GANFORT) BILATERAL
     Dates: start: 20140818

REACTIONS (1)
  - Retinal haemorrhage [Recovering/Resolving]

NARRATIVE: CASE EVENT DATE: 20250922
